FAERS Safety Report 7336954-3 (Version None)
Quarter: 2011Q1

REPORT INFORMATION
  Report Type: 
  Country: None (occurrence: None)
  Receive Date: 20110308
  Receipt Date: 20110225
  Transmission Date: 20110831
  Serious: Yes (Other)
  Sender: FDA-Public Use
  Company Number: US-RB-021896-11

PATIENT
  Age: 53 Year
  Sex: Female

DRUGS (2)
  1. MUCINEX [Suspect]
     Dosage: ON 22-FEB-2011
     Route: 048
  2. DIABETES MEDICATION [Concomitant]

REACTIONS (4)
  - HAEMATOCHEZIA [None]
  - MALAISE [None]
  - DIZZINESS [None]
  - VAGINAL HAEMORRHAGE [None]
